FAERS Safety Report 10031436 (Version 1)
Quarter: 2014Q1

REPORT INFORMATION
  Report Type: Spontaneous
  Country: SE (occurrence: SE)
  Receive Date: 20140324
  Receipt Date: 20140324
  Transmission Date: 20141002
  Serious: Yes (Death)
  Sender: FDA-Public Use
  Company Number: SE-009507513-1403SWE009724

PATIENT
  Age: 33 Year
  Sex: Female

DRUGS (3)
  1. EMEND [Suspect]
     Dosage: UNK
  2. YONDELIS [Suspect]
     Dosage: UNK
  3. ALOXI [Suspect]
     Dosage: UNK

REACTIONS (2)
  - Renal failure [Fatal]
  - Bone marrow failure [Fatal]
